FAERS Safety Report 5130676-5 (Version None)
Quarter: 2006Q4

REPORT INFORMATION
  Report Type: 
  Country: None (occurrence: None)
  Receive Date: 20061019
  Receipt Date: 20061010
  Transmission Date: 20070319
  Serious: Yes (Other)
  Sender: FDA-Public Use
  Company Number: US-JNJFOC-20060605329

PATIENT
  Sex: Female
  Weight: 47.63 kg

DRUGS (10)
  1. RAZADYNE [Suspect]
     Route: 048
  2. RAZADYNE [Suspect]
     Indication: DEMENTIA ALZHEIMER'S TYPE
     Route: 048
  3. ENALAPRIL MALEATE [Suspect]
     Indication: BLOOD PRESSURE ABNORMAL
  4. FOSAMAX [Concomitant]
  5. EVISTA [Concomitant]
  6. MIACALCIN [Concomitant]
  7. HYDROCHLOROTHIAZIDE [Concomitant]
  8. NABUMETONE [Concomitant]
  9. ASPIRIN [Concomitant]
     Indication: COAGULOPATHY
  10. THYROID TAB [Concomitant]

REACTIONS (2)
  - COUGH [None]
  - PULMONARY MASS [None]
